FAERS Safety Report 18666245 (Version 6)
Quarter: 2021Q2

REPORT INFORMATION
  Report Type: Report from Study
  Country: CA (occurrence: CA)
  Receive Date: 20201226
  Receipt Date: 20210527
  Transmission Date: 20210717
  Serious: Yes (Other)
  Sender: FDA-Public Use
  Company Number: NVSC2020CA149306

PATIENT
  Age: 26 Year
  Sex: Female

DRUGS (5)
  1. ADVIL [Concomitant]
     Active Substance: IBUPROFEN
     Indication: PRODUCT USED FOR UNKNOWN INDICATION
     Dosage: UNK, PRN
     Route: 065
  2. COSENTYX [Suspect]
     Active Substance: SECUKINUMAB
     Dosage: 150 MG, QMO
     Route: 058
     Dates: start: 2020, end: 2020
  3. COSENTYX [Suspect]
     Active Substance: SECUKINUMAB
     Dosage: 150 MG, QMO
     Route: 058
     Dates: start: 20201118
  4. COSENTYX [Suspect]
     Active Substance: SECUKINUMAB
     Dosage: 150 MG, QW
     Route: 058
     Dates: start: 20200526
  5. COSENTYX [Suspect]
     Active Substance: SECUKINUMAB
     Indication: ANKYLOSING SPONDYLITIS
     Dosage: 150 MG, QMO
     Route: 058
     Dates: start: 20200519

REACTIONS (16)
  - Dizziness [Recovered/Resolved]
  - Pain [Unknown]
  - Chest discomfort [Unknown]
  - Fatigue [Unknown]
  - Anxiety [Unknown]
  - Panic attack [Unknown]
  - Dyspepsia [Unknown]
  - Therapeutic product effect incomplete [Unknown]
  - Haematochezia [Unknown]
  - Nausea [Unknown]
  - Disorientation [Unknown]
  - Feeling abnormal [Unknown]
  - Malaise [Unknown]
  - Asthenia [Unknown]
  - Vomiting [Unknown]
  - Abdominal pain upper [Unknown]

NARRATIVE: CASE EVENT DATE: 202005
